FAERS Safety Report 5311298-X (Version None)
Quarter: 2007Q2

REPORT INFORMATION
  Report Type: 
  Country: None (occurrence: None)
  Receive Date: 20070430
  Receipt Date: 20070418
  Transmission Date: 20071010
  Serious: Yes (Other)
  Sender: FDA-Public Use
  Company Number: PHBS2007BR06933

PATIENT
  Age: 45 Year
  Sex: Male
  Weight: 75 kg

DRUGS (3)
  1. TRILEPTAL [Suspect]
     Indication: LABYRINTHITIS
     Dosage: 300 MG, Q12H
     Route: 048
     Dates: start: 20070415
  2. SERTRALINE HYDROCHLORIDE [Concomitant]
     Indication: DEPRESSION
     Dosage: 1 TABLET/DAY
     Route: 048
     Dates: start: 20070415
  3. PLASIL [Concomitant]

REACTIONS (6)
  - DIZZINESS [None]
  - HYPOACUSIS [None]
  - MALAISE [None]
  - OCULAR DISCOMFORT [None]
  - RETCHING [None]
  - TINNITUS [None]
